FAERS Safety Report 8605998 (Version 4)
Quarter: 2013Q1

REPORT INFORMATION
  Report Type: Spontaneous
  Country: US (occurrence: US)
  Receive Date: 20120608
  Receipt Date: 20130307
  Transmission Date: 20140127
  Serious: No
  Sender: FDA-Public Use
  Company Number: US-ASTRAZENECA-2012SE36335

PATIENT
  Age: 63 Year
  Sex: Female

DRUGS (5)
  1. NEXIUM [Suspect]
     Route: 048
  2. TOPROL XL [Suspect]
     Route: 048
  3. OMEPRAZOLE [Suspect]
     Dosage: GENERIC
     Route: 048
  4. GABAPENTIN [Concomitant]
  5. PAIN MEDICATION [Concomitant]

REACTIONS (7)
  - Back pain [Unknown]
  - Gastrooesophageal reflux disease [Unknown]
  - Scoliosis [Unknown]
  - Post procedural complication [Unknown]
  - Malaise [Unknown]
  - Drug dose omission [Unknown]
  - Drug ineffective [Unknown]
